FAERS Safety Report 10556887 (Version 2)
Quarter: 2014Q4

REPORT INFORMATION
  Report Type: Spontaneous
  Country: US (occurrence: None)
  Receive Date: 20141029
  Receipt Date: 20141105
  Transmission Date: 20150529
  Serious: Yes (Other)
  Sender: FDA-Public Use
  Company Number: 20140678

PATIENT
  Age: 23 Year
  Sex: Female

DRUGS (1)
  1. LEVETIRACETAM. [Suspect]
     Active Substance: LEVETIRACETAM
     Indication: GENERALISED TONIC-CLONIC SEIZURE

REACTIONS (7)
  - Blood urine [None]
  - Stress [None]
  - Myalgia [None]
  - Acute kidney injury [None]
  - Decreased appetite [None]
  - Insomnia [None]
  - Blood creatinine increased [None]
